FAERS Safety Report 22151008 (Version 1)
Quarter: 2023Q1

REPORT INFORMATION
  Report Type: Spontaneous
  Country: US (occurrence: None)
  Receive Date: 20230328
  Receipt Date: 20230328
  Transmission Date: 20230417
  Serious: Yes (Other)
  Sender: FDA-Public Use
  Company Number: None

PATIENT
  Age: 54 Year
  Sex: Female
  Weight: 59.4 kg

DRUGS (1)
  1. AJOVY [Suspect]
     Active Substance: FREMANEZUMAB-VFRM
     Indication: Migraine
     Dosage: FREQUENCY : MONTHLY;?
     Route: 058

REACTIONS (9)
  - Middle insomnia [None]
  - Pain in extremity [None]
  - Arthralgia [None]
  - Chest discomfort [None]
  - Night sweats [None]
  - Grip strength decreased [None]
  - Paraesthesia [None]
  - Tinnitus [None]
  - Abdominal distension [None]

NARRATIVE: CASE EVENT DATE: 20230223
